FAERS Safety Report 6036131-2 (Version None)
Quarter: 2009Q1

REPORT INFORMATION
  Report Type: 
  Country: None (occurrence: None)
  Receive Date: 20090113
  Receipt Date: 20090106
  Transmission Date: 20090719
  Serious: Yes (Other)
  Sender: FDA-Public Use
  Company Number: US-JNJCH-2009000465

PATIENT
  Age: 88 Year
  Sex: Female
  Weight: 54.4 kg

DRUGS (3)
  1. ADVANCED LISTERINE MOUTHWASH CITRUS [Suspect]
     Indication: DENTAL DISORDER PROPHYLAXIS
     Dosage: TEXT:UNSPECIFIED
     Route: 048
  2. DIOVAN [Concomitant]
     Indication: DRUG USE FOR UNKNOWN INDICATION
     Dosage: TEXT:360 MG
     Route: 065
  3. SYNTHROID [Concomitant]
     Indication: DRUG USE FOR UNKNOWN INDICATION
     Dosage: TEXT:125 MG
     Route: 065

REACTIONS (3)
  - APPLICATION SITE BURN [None]
  - ROSACEA [None]
  - SWELLING FACE [None]
